FAERS Safety Report 4718686-0 (Version None)
Quarter: 2005Q3

REPORT INFORMATION
  Report Type: 
  Country: None (occurrence: None)
  Receive Date: 20050719
  Receipt Date: 20050706
  Transmission Date: 20060218
  Serious: Yes (Life-Threatening, Hospitalization, Other)
  Sender: FDA-Public Use
  Company Number: HQWYE157807JAN04

PATIENT
  Age: 37 Year
  Sex: Male
  Weight: 90 kg

DRUGS (3)
  1. MYLOTARG [Suspect]
     Indication: ACUTE MYELOID LEUKAEMIA
     Dosage: 6 MG/M^2 PER 1 DAY, INTRAVNEOUS
     Route: 042
     Dates: start: 20031219, end: 20031219
  2. CYTARABINE [Suspect]
     Indication: ACUTE MYELOID LEUKAEMIA
     Dosage: 3 G/M^2 ON DAYS ONE, THREE, AND FIVE, INTRAVENOUS
     Route: 042
     Dates: start: 20030901, end: 20030901
  3. CYTARABINE [Suspect]
     Indication: ACUTE MYELOID LEUKAEMIA
     Dosage: 3 G/M^2 ON DAYS ONE, THREE, AND FIVE, INTRAVENOUS
     Route: 042
     Dates: start: 20031101, end: 20031101

REACTIONS (3)
  - BLOOD URIC ACID INCREASED [None]
  - NEUTROPENIA [None]
  - VENOOCCLUSIVE LIVER DISEASE [None]
